FAERS Safety Report 9421522 (Version 2)
Quarter: 2013Q3

REPORT INFORMATION
  Report Type: Spontaneous
  Country: US (occurrence: US)
  Receive Date: 20130726
  Receipt Date: 20130812
  Transmission Date: 20140515
  Serious: Yes (Hospitalization)
  Sender: FDA-Public Use
  Company Number: US-BIOGENIDEC-2013BI067794

PATIENT
  Sex: Female

DRUGS (2)
  1. AVONEX [Suspect]
     Indication: MULTIPLE SCLEROSIS
     Route: 030
     Dates: start: 200207, end: 200308
  2. AVONEX [Suspect]
     Indication: MULTIPLE SCLEROSIS
     Route: 030
     Dates: start: 200308, end: 20040610

REACTIONS (5)
  - Fall [Recovered/Resolved]
  - Urinary tract infection [Unknown]
  - Cystitis [Unknown]
  - Pyrexia [Unknown]
  - Diarrhoea [Not Recovered/Not Resolved]
